FAERS Safety Report 8806590 (Version 1)
Quarter: 2012Q4

REPORT INFORMATION
  Report Type: 
  Country: US (occurrence: US)
  Receive Date: 20120925
  Receipt Date: 20120925
  Transmission Date: 20130627
  Serious: No
  Sender: FDA-Public Use
  Company Number: US-BAYER-2012-081923

PATIENT
  Age: 71 Year
  Sex: Female

DRUGS (5)
  1. AVELOX [Suspect]
     Indication: SINUSITIS
     Dosage: 400 mg, QD
     Route: 048
     Dates: start: 20120731, end: 20120806
  2. PREDNISONE [Suspect]
     Dosage: UNK
     Dates: start: 20120731, end: 20120806
  3. AVALIDE [Concomitant]
  4. NORVASC [Concomitant]
  5. THYROID [Concomitant]

REACTIONS (10)
  - Erythema [Recovering/Resolving]
  - Hypoaesthesia oral [Recovering/Resolving]
  - Oral mucosal blistering [Recovering/Resolving]
  - Dysphagia [Recovering/Resolving]
  - Tremor [Recovering/Resolving]
  - Throat tightness [Recovering/Resolving]
  - Hypotension [Recovering/Resolving]
  - Impatience [Recovering/Resolving]
  - Blood potassium decreased [Recovering/Resolving]
  - Asthenia [Recovering/Resolving]
